FAERS Safety Report 13466423 (Version 1)
Quarter: 2017Q2

REPORT INFORMATION
  Report Type: Spontaneous
  Country: US (occurrence: US)
  Receive Date: 20170421
  Receipt Date: 20170421
  Transmission Date: 20170830
  Serious: No
  Sender: FDA-Public Use
  Company Number: US-THROMBOGENICS NV-SPO-2017-2350

PATIENT
  Sex: Female

DRUGS (2)
  1. MELOXICAM. [Concomitant]
     Active Substance: MELOXICAM
     Indication: PRODUCT USED FOR UNKNOWN INDICATION
  2. JETREA [Suspect]
     Active Substance: OCRIPLASMIN
     Indication: IRIS ADHESIONS
     Dosage: 0.125 MG, ONE TIME DOSE
     Route: 031

REACTIONS (6)
  - Vitreous floaters [Unknown]
  - Photopsia [Unknown]
  - Product use in unapproved indication [Unknown]
  - Eye irritation [Unknown]
  - Eye pain [Unknown]
  - Visual impairment [Unknown]
